FAERS Safety Report 23161879 (Version 1)
Quarter: 2023Q4

REPORT INFORMATION
  Report Type: Spontaneous
  Country: DE (occurrence: DE)
  Receive Date: 20231109
  Receipt Date: 20231109
  Transmission Date: 20240110
  Serious: Yes (Other)
  Sender: FDA-Public Use
  Company Number: DE-STRIDES ARCOLAB LIMITED-2023SP016618

PATIENT
  Sex: Male

DRUGS (11)
  1. ETOPOSIDE [Suspect]
     Active Substance: ETOPOSIDE
     Indication: Non-Hodgkin^s lymphoma
     Dosage: UNK, WITH CYCLOPHOSPHAMIDE, PROCARBAZINE, DOXORUBICIN, BLEOMYCIN, VINCRISTINE, AND PREDNISOLONE IN B
     Route: 065
  2. PREDNISOLONE [Suspect]
     Active Substance: PREDNISOLONE
     Indication: Non-Hodgkin^s lymphoma
     Dosage: UNK, WITH CYCLOPHOSPHAMIDE, ETOPOSIDE, PROCARBAZINE, DOXORUBICIN, BLEOMYCIN, VINCRISTINE IN BEACOPP
     Route: 065
  3. CYCLOPHOSPHAMIDE [Suspect]
     Active Substance: CYCLOPHOSPHAMIDE
     Indication: Non-Hodgkin^s lymphoma
     Dosage: UNK, WITH ETOPOSIDE, PROCARBAZINE, DOXORUBICIN, BLEOMYCIN, VINCRISTINE, AND PREDNISOLONE IN BEACOPP
     Route: 065
  4. PROCARBAZINE [Suspect]
     Active Substance: PROCARBAZINE
     Indication: Non-Hodgkin^s lymphoma
     Dosage: UNK, WITH CYCLOPHOSPHAMIDE, ETOPOSIDE, DOXORUBICIN, BLEOMYCIN, VINCRISTINE, AND PREDNISOLONE IN BEAC
     Route: 065
  5. ADRIAMYCIN [Suspect]
     Active Substance: DOXORUBICIN HYDROCHLORIDE
     Indication: Non-Hodgkin^s lymphoma
     Dosage: UNK, WITH CYCLOPHOSPHAMIDE, ETOPOSIDE, PROCARBAZINE, BLEOMYCIN, VINCRISTINE, AND PREDNISOLONE IN BEA
     Route: 065
  6. ADRIAMYCIN [Suspect]
     Active Substance: DOXORUBICIN HYDROCHLORIDE
     Dosage: UNK, WITH BLEOMYCIN, VINBLASTINE, AND DACARBAZINE IN ABVD
     Route: 065
  7. BLEOMYCIN [Suspect]
     Active Substance: BLEOMYCIN SULFATE
     Indication: Non-Hodgkin^s lymphoma
     Dosage: UNK, WITH CYCLOPHOSPHAMIDE, ETOPOSIDE, PROCARBAZINE, DOXORUBICIN, VINCRISTINE, AND PREDNISOLONE IN B
     Route: 065
  8. BLEOMYCIN [Suspect]
     Active Substance: BLEOMYCIN SULFATE
     Dosage: UNK, WITH DOXORUBICIN, VINBLASTINE, AND DACARBAZINE IN ABVD
     Route: 065
  9. VINCRISTINE [Suspect]
     Active Substance: VINCRISTINE
     Indication: Non-Hodgkin^s lymphoma
     Dosage: UNK, WITH CYCLOPHOSPHAMIDE, ETOPOSIDE, PROCARBAZINE, DOXORUBICIN, BLEOMYCIN, AND PREDNISOLONE IN BEA
     Route: 065
  10. VINBLASTINE [Suspect]
     Active Substance: VINBLASTINE
     Indication: Non-Hodgkin^s lymphoma
     Dosage: UNK, WITH DOXORUBICIN, BLEOMYCIN, AND DACARBAZINE IN ABVD
     Route: 065
  11. DACARBAZINE [Suspect]
     Active Substance: DACARBAZINE
     Indication: Non-Hodgkin^s lymphoma
     Dosage: UNK, WITH DOXORUBICIN, BLEOMYCIN, AND VINBLASTINE IN ABVD
     Route: 065

REACTIONS (6)
  - Neuropathy peripheral [Unknown]
  - Erectile dysfunction [Unknown]
  - Sensory disturbance [Unknown]
  - Male reproductive tract disorder [Unknown]
  - Penis disorder [Unknown]
  - Off label use [Unknown]
